FAERS Safety Report 6549041-9 (Version None)
Quarter: 2010Q1

REPORT INFORMATION
  Report Type: 
  Country: None (occurrence: None)
  Receive Date: 20100119
  Receipt Date: 20091221
  Transmission Date: 20100710
  Serious: Yes (Death)
  Sender: FDA-Public Use
  Company Number: 003713

PATIENT
  Age: 37 Year
  Sex: Male

DRUGS (2)
  1. CERTOLIZUMAB PEGOL (CERTOLIZUMAB PEGOL) [Suspect]
     Indication: CROHN'S DISEASE
     Dosage: (TWO UNSPECIFIED DOSES ADMINISTERED SUBCUTANEOUS)
     Route: 058
  2. ADALIMUMAB (ADALIMUMAB) [Suspect]
     Indication: CROHN'S DISEASE
     Dosage: (THIRD DOSE WAS GIVEN)

REACTIONS (1)
  - SUDDEN DEATH [None]
